FAERS Safety Report 7817025 (Version 3)
Quarter: 2014Q2

REPORT INFORMATION
  Report Type: Report from Study
  Country: DE (occurrence: DE)
  Receive Date: 20110217
  Receipt Date: 20140416
  Transmission Date: 20141212
  Serious: Yes (Death)
  Sender: FDA-Public Use
  Company Number: DE-ROCHE-756505

PATIENT
  Age: 55 Year
  Sex: Female
  Weight: 55.4 kg

DRUGS (23)
  1. MYCOPHENOLATE MOFETIL [Suspect]
     Indication: PROPHYLAXIS AGAINST TRANSPLANT REJECTION
     Dosage: LAST DOSE PRIOR TO SAE: 27 JANUARY 2011
     Route: 048
  2. METOPROLOL [Concomitant]
     Route: 065
     Dates: start: 20101217, end: 20110127
  3. PRAVASTATIN [Concomitant]
     Route: 065
     Dates: start: 20101209, end: 20110127
  4. OMEGA-3 ACID ETHYL ESTERS [Concomitant]
     Dosage: DRUG REPORTED AS OMEGA-3-SAUR ETHYL ESTER
     Route: 065
     Dates: start: 20100119, end: 20110127
  5. MAGNESIUM [Concomitant]
     Route: 065
     Dates: start: 20101209, end: 20110127
  6. CALCIUM/VITAMIN D [Concomitant]
     Dosage: TOTAL DAILY DOSE: 12 GRAM/800 IU
     Route: 065
     Dates: start: 20110110, end: 20110127
  7. MIRTAZAPIN [Concomitant]
     Route: 065
     Dates: start: 20110110, end: 20110127
  8. METOCLOPRAMID [Concomitant]
     Route: 065
     Dates: start: 20101231, end: 20110127
  9. TOLAZAMIDE [Concomitant]
     Route: 065
     Dates: start: 20110110, end: 20110127
  10. PANTOPRAZOL [Concomitant]
     Route: 065
     Dates: start: 20101209, end: 20110127
  11. TINZAPARIN SODIUM [Concomitant]
     Route: 065
     Dates: start: 20110110, end: 20110127
  12. XYLOMETAZOLINE [Concomitant]
     Dosage: DOSE: AS NECESSARY
     Route: 065
  13. ACETYLCYSTEIN [Concomitant]
     Route: 065
     Dates: start: 20101209, end: 20110127
  14. LABETALOL [Concomitant]
     Route: 065
     Dates: start: 20110119, end: 20110127
  15. CIPRAMIL [Concomitant]
     Route: 065
     Dates: start: 201101, end: 20110127
  16. PERMETHRIN [Concomitant]
     Dosage: DOSE: AS NECESSARY
     Route: 065
     Dates: start: 201101, end: 20110127
  17. CYCLOSPORIN [Concomitant]
     Route: 065
     Dates: start: 20101209, end: 20110127
  18. PREDNISOLONE [Concomitant]
     Route: 065
     Dates: start: 20101209, end: 20101227
  19. CO-TRIMOXAZOLE [Concomitant]
     Dosage: 960 MG AS NECESSARY
     Route: 065
     Dates: start: 20101210, end: 20110127
  20. ITRACONAZOL [Concomitant]
     Route: 065
     Dates: start: 20101209, end: 20110127
  21. VALGANCICLOVIR [Concomitant]
     Route: 065
     Dates: start: 20101209, end: 20110127
  22. SODIUM CHLORIDE [Concomitant]
     Route: 065
     Dates: start: 201101, end: 20110127
  23. PROMETHAZINE [Concomitant]
     Dosage: DOSE 25 MG AS NEEDED.
     Route: 065

REACTIONS (1)
  - Sudden cardiac death [Fatal]
